FAERS Safety Report 6375613-0 (Version None)
Quarter: 2009Q3

REPORT INFORMATION
  Report Type: 
  Country: None (occurrence: None)
  Receive Date: 20090917
  Receipt Date: 20090917
  Transmission Date: 20100115
  Serious: No
  Sender: FDA-Public Use
  Company Number: None

PATIENT
  Age: 19 Year
  Sex: Female
  Weight: 43.0917 kg

DRUGS (1)
  1. MACRODANTIN [Suspect]
     Indication: URINARY TRACT INFECTION
     Dosage: 1 PILL ONCE AFTER SEX ABOUT 9 MONTHS

REACTIONS (6)
  - BLADDER PAIN [None]
  - BURNING SENSATION [None]
  - DRUG HYPERSENSITIVITY [None]
  - FUNGAL INFECTION [None]
  - PRURITUS [None]
  - URETHRAL PAIN [None]
